FAERS Safety Report 5488892-9 (Version None)
Quarter: 2007Q4

REPORT INFORMATION
  Report Type: 
  Country: None (occurrence: None)
  Receive Date: 20071017
  Receipt Date: 20071005
  Transmission Date: 20080405
  Serious: Yes (Hospitalization, Other)
  Sender: FDA-Public Use
  Company Number: US-PFIZER INC-2007085207

PATIENT
  Sex: Female
  Weight: 121.1 kg

DRUGS (6)
  1. CHANTIX [Suspect]
     Indication: SMOKING CESSATION THERAPY
     Dates: start: 20070901, end: 20071005
  2. ANTIHYPERTENSIVES [Concomitant]
  3. ALL OTHER THERAPEUTIC PRODUCTS [Concomitant]
  4. DIURETICS [Concomitant]
  5. ANTIDEPRESSANTS [Concomitant]
  6. INSULIN [Concomitant]

REACTIONS (4)
  - FEELING HOT [None]
  - MALAISE [None]
  - NAUSEA [None]
  - SWOLLEN TONGUE [None]
